FAERS Safety Report 15809250 (Version 4)
Quarter: 2020Q2

REPORT INFORMATION
  Report Type: Report from Study
  Country: CA (occurrence: CA)
  Receive Date: 20190110
  Receipt Date: 20200511
  Transmission Date: 20200713
  Serious: Yes (Hospitalization, Other)
  Sender: FDA-Public Use
  Company Number: CA-BAYER-2018-162246

PATIENT
  Age: 45 Year
  Sex: Female

DRUGS (2)
  1. ADEMPAS [Suspect]
     Active Substance: RIOCIGUAT
     Indication: PULMONARY ARTERIAL HYPERTENSION
  2. ADEMPAS [Suspect]
     Active Substance: RIOCIGUAT
     Indication: PULMONARY ARTERIAL HYPERTENSION
     Dosage: 2.5 MG, TID
     Route: 048
     Dates: start: 20170824

REACTIONS (19)
  - Pancreatitis [Recovered/Resolved]
  - Gastrointestinal disorder [Recovered/Resolved]
  - Dehydration [None]
  - Fluid intake reduced [None]
  - Blood pressure decreased [Recovered/Resolved]
  - Blood pressure systolic decreased [None]
  - Pancreatitis chronic [None]
  - Blood pressure systolic decreased [Recovered/Resolved]
  - Abdominal pain upper [None]
  - Gastritis [Recovered/Resolved]
  - Blood pressure decreased [Not Recovered/Not Resolved]
  - Pancreatic disorder [None]
  - Abdominal pain upper [None]
  - Blood pressure decreased [Recovered/Resolved]
  - Dizziness [Not Recovered/Not Resolved]
  - Food refusal [None]
  - Blood pressure decreased [None]
  - Dehydration [Recovered/Resolved]
  - Pain [Recovered/Resolved]

NARRATIVE: CASE EVENT DATE: 20180825
